FAERS Safety Report 8597824-6 (Version None)
Quarter: 2012Q3

REPORT INFORMATION
  Report Type: 
  Country: None (occurrence: None)
  Receive Date: 20120816
  Receipt Date: 20120808
  Transmission Date: 20120928
  Serious: Yes (Other)
  Sender: FDA-Public Use
  Company Number: US-GENZYME-LEUK-1000292

PATIENT
  Age: 61 Year
  Sex: Male
  Weight: 82.6 kg

DRUGS (4)
  1. IPILIMUMAB [Suspect]
     Dosage: 10 MG/KG ON DAY 1 Q12 WEEKS (MAINTENANCE THERAPY)
     Route: 042
     Dates: end: 20110612
  2. LEUKINE [Suspect]
     Indication: MALIGNANT MELANOMA
     Dosage: 250 MCG (INDUCTION THERAPY)
     Route: 042
     Dates: start: 20110712
  3. LEUKINE [Suspect]
     Dosage: 250 MCG (MAINTENANCE THERAPY)
     Route: 042
  4. IPILIMUMAB [Suspect]
     Indication: MALIGNANT MELANOMA
     Dosage: 10 MG/KG ON DAY 1 (INDUCTION THERAPY)
     Route: 042
     Dates: start: 20110712

REACTIONS (7)
  - PANCREATITIS [None]
  - ARTHRALGIA [None]
  - DECREASED APPETITE [None]
  - AMYLASE INCREASED [None]
  - LIPASE INCREASED [None]
  - FATIGUE [None]
  - MYALGIA [None]
